FAERS Safety Report 9271488 (Version 1)
Quarter: 2013Q2

REPORT INFORMATION
  Report Type: Spontaneous
  Country: US (occurrence: US)
  Receive Date: 20130506
  Receipt Date: 20130506
  Transmission Date: 20140414
  Serious: No
  Sender: FDA-Public Use
  Company Number: US-PFIZER INC-2013138603

PATIENT
  Age: 51 Year
  Sex: Female
  Weight: 61.22 kg

DRUGS (7)
  1. LYRICA [Suspect]
     Indication: FIBROMYALGIA
     Dosage: 25 MG, 4X/DAY
     Dates: start: 2007
  2. OXYCONTIN [Suspect]
     Indication: BACK PAIN
     Dosage: 10 MG, 1X/DAY
  3. OXYCONTIN [Suspect]
     Indication: INTERVERTEBRAL DISC PROTRUSION
     Dosage: 10 MG, ALTERNATE DAY
  4. OXYCONTIN [Suspect]
     Indication: SCOLIOSIS
  5. PAMELOR [Concomitant]
     Indication: FIBROMYALGIA
     Dosage: UNK
  6. TOPAMAX [Concomitant]
     Indication: MIGRAINE
     Dosage: 25 MG, 3X/DAY
  7. SOMA [Concomitant]
     Dosage: 350 MG, AS NEEDED

REACTIONS (6)
  - Neuropathy peripheral [Not Recovered/Not Resolved]
  - Pain in extremity [Not Recovered/Not Resolved]
  - Sensory disturbance [Not Recovered/Not Resolved]
  - Limb discomfort [Not Recovered/Not Resolved]
  - Muscle spasms [Not Recovered/Not Resolved]
  - Swelling [Not Recovered/Not Resolved]
